FAERS Safety Report 24239073 (Version 1)
Quarter: 2024Q3

REPORT INFORMATION
  Report Type: Spontaneous
  Country: US (occurrence: US)
  Receive Date: 20240822
  Receipt Date: 20240822
  Transmission Date: 20241017
  Serious: No
  Sender: AVADEL CNS PHARMA
  Company Number: US-AVADEL CNS PHARMACEUTICALS, LLC-2024AVA01151

PATIENT
  Sex: Female

DRUGS (3)
  1. LUMRYZ [Suspect]
     Active Substance: SODIUM OXYBATE
     Indication: Narcolepsy
     Dosage: UNK
     Dates: start: 20240502
  2. INSULIN NOS [Suspect]
     Active Substance: INSULIN NOS
     Indication: Diabetes mellitus
     Dosage: UNK
     Dates: end: 2024
  3. INSULIN NOS [Suspect]
     Active Substance: INSULIN NOS
     Dosage: UNK, LOWER DOSES
     Dates: start: 2024

REACTIONS (1)
  - Decreased insulin requirement [Recovered/Resolved]

NARRATIVE: CASE EVENT DATE: 20240101
